FAERS Safety Report 8114712-X (Version None)
Quarter: 2012Q1

REPORT INFORMATION
  Report Type: 
  Country: None (occurrence: None)
  Receive Date: 20120202
  Receipt Date: 20120202
  Transmission Date: 20120608
  Serious: No
  Sender: FDA-Public Use
  Company Number: None

PATIENT
  Sex: Female

DRUGS (2)
  1. PEGASYS [Suspect]
     Dosage: 100MCG SQ QWEEK
     Route: 058
     Dates: start: 20110908
  2. RIBASPHERE [Suspect]
     Dosage: 1000MG PO DAILY
     Route: 048
     Dates: start: 20110908

REACTIONS (1)
  - ALOPECIA [None]
